FAERS Safety Report 7769057-4 (Version None)
Quarter: 2011Q3

REPORT INFORMATION
  Report Type: 
  Country: None (occurrence: None)
  Receive Date: 20110922
  Receipt Date: 20110113
  Transmission Date: 20111222
  Serious: No
  Sender: FDA-Public Use
  Company Number: US-ASTRAZENECA-2008UW00800

PATIENT
  Age: 14599 Day
  Sex: Male
  Weight: 162.8 kg

DRUGS (34)
  1. RISPERDAL [Concomitant]
  2. BUSPIRONE HCL [Concomitant]
  3. EFFEXOR [Concomitant]
     Dates: start: 20030203
  4. SEROQUEL [Suspect]
     Route: 048
     Dates: start: 20020201, end: 20031101
  5. SEROQUEL [Suspect]
     Dosage: 150 TO 600 MG
     Route: 048
     Dates: start: 20020623
  6. KLONOPIN [Concomitant]
     Dosage: 0.5 TO 1 MG
     Dates: start: 20031113
  7. ESKALITH [Concomitant]
     Dosage: 300 TO 900 MG
     Dates: start: 20021230
  8. XANAX [Concomitant]
     Dosage: 0.5 MG FOUR TABS A DAY
     Dates: start: 20020205
  9. SEROQUEL [Suspect]
     Route: 048
     Dates: start: 20020201, end: 20031101
  10. RISPERDAL [Concomitant]
     Dosage: 1.5 TO 4 MG
     Route: 048
     Dates: start: 20040216
  11. WELLBUTRIN XL [Concomitant]
     Dosage: 150 TO 450 MG
     Dates: start: 20040216
  12. PROZAC [Concomitant]
     Dosage: 10 TO 300 MG
     Dates: start: 20031017
  13. NORVASC [Concomitant]
     Indication: BLOOD PRESSURE
     Dates: start: 20040513
  14. PROTONIX [Concomitant]
     Dates: start: 20021230
  15. LIPITOR [Concomitant]
     Dates: start: 20031031
  16. SEROQUEL [Suspect]
     Indication: BIPOLAR DISORDER
     Dosage: 50 MG TO 400 MG
     Route: 048
     Dates: start: 20020123
  17. SEROQUEL [Suspect]
     Indication: HALLUCINATION, AUDITORY
     Dosage: 50 MG TO 400 MG
     Route: 048
     Dates: start: 20020123
  18. SEROQUEL [Suspect]
     Dosage: 150 TO 600 MG
     Route: 048
     Dates: start: 20020623
  19. SEROQUEL [Suspect]
     Dosage: 150 TO 600 MG
     Route: 048
     Dates: start: 20020623
  20. SEROQUEL [Suspect]
     Route: 048
     Dates: start: 20020201, end: 20031101
  21. GABAPENTIN [Concomitant]
  22. LITHIUM CARBONATE [Concomitant]
  23. PROVIGIL [Concomitant]
     Dates: start: 20030203
  24. SEROQUEL [Suspect]
     Indication: DEPRESSION
     Dosage: 50 MG TO 400 MG
     Route: 048
     Dates: start: 20020123
  25. SEROQUEL [Suspect]
     Route: 048
     Dates: start: 20020201, end: 20031101
  26. LITHIUM CARBONATE [Concomitant]
     Dosage: 300 MG TWO CAPSULES AM AND TWO CAPSULES HS
     Dates: start: 20020123
  27. CLONAZEPAM [Concomitant]
  28. CYMBALTA [Concomitant]
  29. AMBIEN [Concomitant]
     Dates: start: 20031205
  30. CELEXA [Concomitant]
     Dosage: 40 MG TO 60 MG
     Dates: start: 20020123
  31. SEROQUEL [Suspect]
     Indication: AFFECT LABILITY
     Dosage: 50 MG TO 400 MG
     Route: 048
     Dates: start: 20020123
  32. SEROQUEL [Suspect]
     Dosage: 150 TO 600 MG
     Route: 048
     Dates: start: 20020623
  33. WELLBUTRIN XL [Concomitant]
  34. HYZAAR [Concomitant]
     Indication: BLOOD PRESSURE
     Dates: start: 20040216

REACTIONS (4)
  - OBESITY [None]
  - TYPE 2 DIABETES MELLITUS [None]
  - DIABETES MELLITUS [None]
  - ASTHENIA [None]
